FAERS Safety Report 5885786-1 (Version None)
Quarter: 2008Q3

REPORT INFORMATION
  Report Type: 
  Country: None (occurrence: None)
  Receive Date: 20080917
  Receipt Date: 20080905
  Transmission Date: 20090109
  Serious: Yes (Life-Threatening, Hospitalization, Other)
  Sender: FDA-Public Use
  Company Number: GB-RANBAXY-2007RR-06583

PATIENT

DRUGS (5)
  1. ACETAMINOPHEN [Suspect]
     Dosage: 10000 MG, UNK
     Route: 048
  2. ACETAMINOPHEN W/ PROPOXYPHENE HCL [Suspect]
     Indication: MEDICATION ERROR
     Dosage: 20 MG, UNK
     Route: 048
  3. RISPERIDONE [Suspect]
  4. DEXTROPROPOXYPHENE [Suspect]
     Indication: MEDICATION ERROR
     Dosage: 2 G, UNK
  5. SERTRALINE [Suspect]

REACTIONS (13)
  - ACUTE HEPATIC FAILURE [None]
  - ALANINE AMINOTRANSFERASE INCREASED [None]
  - BLOOD ALKALINE PHOSPHATASE INCREASED [None]
  - BRAIN OEDEMA [None]
  - CSF GLUCOSE DECREASED [None]
  - GAMMA-GLUTAMYLTRANSFERASE INCREASED [None]
  - HEPATIC ENCEPHALOPATHY [None]
  - MULTIPLE DRUG OVERDOSE INTENTIONAL [None]
  - OLIGURIA [None]
  - OVERDOSE [None]
  - PULMONARY OEDEMA [None]
  - SOMNOLENCE [None]
  - URINE OUTPUT DECREASED [None]
